FAERS Safety Report 13379234 (Version 2)
Quarter: 2017Q2

REPORT INFORMATION
  Report Type: Spontaneous
  Country: US (occurrence: US)
  Receive Date: 20170328
  Receipt Date: 20170509
  Transmission Date: 20170830
  Serious: Yes (Hospitalization)
  Sender: FDA-Public Use
  Company Number: US-CELGENEUS-USA-2017038525

PATIENT
  Age: 83 Year
  Sex: Female
  Weight: 76.2 kg

DRUGS (36)
  1. FUROSEMIDE. [Concomitant]
     Active Substance: FUROSEMIDE
     Indication: OEDEMA PERIPHERAL
  2. POTASSIUM CHLORIDE. [Concomitant]
     Active Substance: POTASSIUM CHLORIDE
     Dosage: 40 MILLIEQUIVALENTS
     Route: 041
     Dates: start: 20160321, end: 20160328
  3. ONDANSETRON [Concomitant]
     Active Substance: ONDANSETRON
     Indication: PROPHYLAXIS
     Route: 041
     Dates: start: 20160313
  4. ALBUTEROL. [Concomitant]
     Active Substance: ALBUTEROL
     Indication: SEASONAL ALLERGY
     Route: 055
     Dates: start: 20160326
  5. SODIUM CHLORIDE. [Concomitant]
     Active Substance: SODIUM CHLORIDE
     Indication: SEASONAL ALLERGY
     Route: 045
     Dates: start: 20160323
  6. TRIAMCINOLONE [Concomitant]
     Active Substance: TRIAMCINOLONE
     Indication: PRURITUS
     Dosage: .1 PERCENT
     Route: 061
     Dates: start: 20160331
  7. FILGRASTIM [Concomitant]
     Active Substance: FILGRASTIM
     Dosage: 480 MICROGRAM
     Route: 058
     Dates: start: 20161227
  8. VENETOCLAX [Suspect]
     Active Substance: VENETOCLAX
     Indication: ACUTE MYELOID LEUKAEMIA
     Route: 048
     Dates: start: 20160322, end: 20161226
  9. VENETOCLAX [Suspect]
     Active Substance: VENETOCLAX
     Route: 048
     Dates: start: 20160322, end: 20160323
  10. VENETOCLAX [Suspect]
     Active Substance: VENETOCLAX
     Route: 048
     Dates: start: 20161018
  11. FUROSEMIDE. [Concomitant]
     Active Substance: FUROSEMIDE
     Indication: HYPOVOLAEMIA
     Route: 041
  12. POTASSIUM CHLORIDE. [Concomitant]
     Active Substance: POTASSIUM CHLORIDE
     Route: 048
     Dates: start: 20160322, end: 20160322
  13. ONDANSETRON [Concomitant]
     Active Substance: ONDANSETRON
     Route: 048
     Dates: start: 20160503
  14. VIDAZA [Suspect]
     Active Substance: AZACITIDINE
     Indication: ACUTE MYELOID LEUKAEMIA
     Route: 041
     Dates: start: 20160322, end: 20170123
  15. ONDANSETRON [Concomitant]
     Active Substance: ONDANSETRON
     Indication: NAUSEA
     Route: 048
     Dates: start: 20160322
  16. VENETOCLAX [Suspect]
     Active Substance: VENETOCLAX
     Route: 048
     Dates: start: 20160324, end: 20160324
  17. POTASSIUM CHLORIDE. [Concomitant]
     Active Substance: POTASSIUM CHLORIDE
     Route: 041
     Dates: start: 20160312, end: 20160312
  18. POTASSIUM CHLORIDE. [Concomitant]
     Active Substance: POTASSIUM CHLORIDE
     Route: 048
     Dates: start: 20160319, end: 20160319
  19. MICAFUNGIN [Concomitant]
     Active Substance: MICAFUNGIN
     Indication: PROPHYLAXIS
  20. FILGRASTIM [Concomitant]
     Active Substance: FILGRASTIM
     Dosage: 480 MICROGRAM
     Route: 058
     Dates: start: 20161115, end: 20161118
  21. VENETOCLAX [Suspect]
     Active Substance: VENETOCLAX
     Route: 048
     Dates: start: 20160325, end: 20160919
  22. POTASSIUM CHLORIDE. [Concomitant]
     Active Substance: POTASSIUM CHLORIDE
     Indication: HYPOKALAEMIA
     Route: 048
     Dates: start: 20160317, end: 20160317
  23. MICAFUNGIN [Concomitant]
     Active Substance: MICAFUNGIN
     Indication: FUNGAL INFECTION
     Dosage: 150 MILLIGRAM
     Route: 041
     Dates: start: 20160405
  24. PROCHLORPERAZINE. [Concomitant]
     Active Substance: PROCHLORPERAZINE
     Indication: NAUSEA
     Route: 065
     Dates: start: 20160702
  25. VENETOCLAX [Suspect]
     Active Substance: VENETOCLAX
     Route: 048
     Dates: start: 20160322, end: 20161226
  26. POTASSIUM CHLORIDE. [Concomitant]
     Active Substance: POTASSIUM CHLORIDE
     Route: 041
     Dates: start: 20160318, end: 20160318
  27. POTASSIUM CHLORIDE. [Concomitant]
     Active Substance: POTASSIUM CHLORIDE
     Route: 048
     Dates: start: 20160324, end: 20160324
  28. POTASSIUM CHLORIDE. [Concomitant]
     Active Substance: POTASSIUM CHLORIDE
     Dosage: 40 MILLIEQUIVALENTS
     Route: 041
     Dates: start: 20160408
  29. NIFEDIPINE. [Concomitant]
     Active Substance: NIFEDIPINE
     Indication: HYPERTENSION
     Dosage: 30 MILLIGRAM
     Route: 048
     Dates: start: 20160326
  30. PROCHLORPERAZINE. [Concomitant]
     Active Substance: PROCHLORPERAZINE
     Indication: PROPHYLAXIS
  31. FUROSEMIDE. [Concomitant]
     Active Substance: FUROSEMIDE
     Indication: PROPHYLAXIS
     Dosage: 20 MILLIGRAM
     Route: 048
     Dates: start: 20170103
  32. ACYCLOVIR. [Concomitant]
     Active Substance: ACYCLOVIR
     Indication: VIRAL INFECTION
     Dosage: 1600 MILLIGRAM
     Route: 048
     Dates: start: 20160330
  33. URSODIOL. [Concomitant]
     Active Substance: URSODIOL
     Indication: CHOLELITHIASIS
     Dosage: 600 MILLIGRAM
     Route: 048
     Dates: start: 20131018
  34. NITROGLYCERIN. [Concomitant]
     Active Substance: NITROGLYCERIN
     Indication: CHEST PAIN
     Route: 060
     Dates: start: 20160315
  35. ACYCLOVIR. [Concomitant]
     Active Substance: ACYCLOVIR
     Indication: PROPHYLAXIS
  36. FILGRASTIM [Concomitant]
     Active Substance: FILGRASTIM
     Indication: NEUTROPENIA
     Dosage: 480 MICROGRAM
     Route: 058
     Dates: start: 20131011, end: 20161015

REACTIONS (1)
  - Influenza [Recovered/Resolved]

NARRATIVE: CASE EVENT DATE: 20170207
